FAERS Safety Report 17130709 (Version 1)
Quarter: 2019Q4

REPORT INFORMATION
  Report Type: Spontaneous
  Country: DE (occurrence: DE)
  Receive Date: 20191209
  Receipt Date: 20191209
  Transmission Date: 20200122
  Serious: Yes (Other)
  Sender: FDA-Public Use
  Company Number: DE-MYLANLABS-2019M1119987

PATIENT
  Age: 62 Year
  Sex: Female

DRUGS (5)
  1. OLANZAPINE. [Suspect]
     Active Substance: OLANZAPINE
     Indication: SCHIZOPHRENIA
     Dosage: UNK
     Route: 065
     Dates: start: 20080101, end: 20181231
  2. XEPLION [Suspect]
     Active Substance: PALIPERIDONE PALMITATE
     Indication: SCHIZOPHRENIA
     Dosage: UNK
     Route: 030
     Dates: start: 20080101, end: 20181231
  3. CITALOPRAM [Suspect]
     Active Substance: CITALOPRAM HYDROBROMIDE
     Indication: SCHIZOPHRENIA
     Dosage: UNK
     Route: 065
     Dates: start: 20080101, end: 20181231
  4. VALPROAT [Suspect]
     Active Substance: VALPROATE SODIUM
     Indication: SCHIZOPHRENIA
     Dosage: UNK
     Route: 065
     Dates: start: 20080101, end: 20181231
  5. TRIMIPRAMIN                        /00051802/ [Suspect]
     Active Substance: TRIMIPRAMINE MALEATE
     Indication: SCHIZOPHRENIA
     Dosage: UNK
     Route: 065
     Dates: start: 20080101, end: 20181231

REACTIONS (5)
  - Hypothyroidism [Unknown]
  - Tremor [Unknown]
  - Type 2 diabetes mellitus [Unknown]
  - Bruxism [Unknown]
  - Weight increased [Unknown]

NARRATIVE: CASE EVENT DATE: 20080201
